FAERS Safety Report 9804900 (Version 16)
Quarter: 2015Q4

REPORT INFORMATION
  Report Type: Report from Study
  Country: CA (occurrence: CA)
  Receive Date: 20140108
  Receipt Date: 20151030
  Transmission Date: 20160305
  Serious: Yes (Death, Hospitalization, Other)
  Sender: FDA-Public Use
  Company Number: PHHY2013CA051674

PATIENT
  Age: 49 Year
  Sex: Female
  Weight: 43.84 kg

DRUGS (2)
  1. SANDOSTATIN LAR DEPOT [Suspect]
     Active Substance: OCTREOTIDE ACETATE
     Indication: NEUROENDOCRINE TUMOUR
     Dosage: 30 MG, QMO
     Route: 030
     Dates: start: 20130506
  2. SANDOSTATIN LAR DEPOT [Suspect]
     Active Substance: OCTREOTIDE ACETATE
     Dosage: 30 MG, QMO
     Route: 030
     Dates: start: 20141215, end: 20150921

REACTIONS (24)
  - Blood pressure decreased [Unknown]
  - Dyspepsia [Unknown]
  - Vomiting [Unknown]
  - Road traffic accident [Unknown]
  - Musculoskeletal chest pain [Unknown]
  - Malaise [Unknown]
  - Death [Fatal]
  - Bone pain [Unknown]
  - Back pain [Unknown]
  - Feeling abnormal [Unknown]
  - Alopecia [Unknown]
  - White blood cell count decreased [Unknown]
  - Hypersomnia [Unknown]
  - Yellow skin [Unknown]
  - Fatigue [Unknown]
  - Asthenia [Unknown]
  - Arthralgia [Unknown]
  - Pain [Unknown]
  - Musculoskeletal pain [Unknown]
  - Nausea [Unknown]
  - Weight decreased [Unknown]
  - Injection site mass [Unknown]
  - Crying [Unknown]
  - Abdominal pain upper [Unknown]

NARRATIVE: CASE EVENT DATE: 20131118
